FAERS Safety Report 10019895 (Version 2)
Quarter: 2014Q2

REPORT INFORMATION
  Report Type: Spontaneous
  Country: US (occurrence: US)
  Receive Date: 20140318
  Receipt Date: 20140618
  Transmission Date: 20141212
  Serious: No
  Sender: FDA-Public Use
  Company Number: US-GALDERMA-US14000389

PATIENT
  Age: 49 Year
  Sex: Female

DRUGS (2)
  1. MIRVASO (BRIMONIDINE) TOPICAL GEL, 0.33% [Suspect]
     Indication: ROSACEA
     Dosage: 0.33%
     Route: 061
     Dates: start: 20140123, end: 20140125
  2. MINOCYCLINE [Concomitant]
     Indication: ROSACEA
     Dosage: 100 MG
     Route: 048
     Dates: start: 2013

REACTIONS (4)
  - Condition aggravated [Recovered/Resolved]
  - Feeling cold [Recovered/Resolved]
  - Erythema [Recovered/Resolved]
  - Flushing [Recovered/Resolved]
